FAERS Safety Report 15586526 (Version 1)
Quarter: 2018Q4

REPORT INFORMATION
  Report Type: Spontaneous
  Country: US (occurrence: US)
  Receive Date: 20181105
  Receipt Date: 20181105
  Transmission Date: 20190205
  Serious: No
  Sender: FDA-Public Use
  Company Number: US-TEVA-2018-US-970036

PATIENT
  Sex: Female

DRUGS (1)
  1. PACLIINJ-A [Suspect]
     Active Substance: PACLITAXEL
     Indication: BREAST CANCER
     Dosage: FORM STRENGTH: 300MG/50ML
     Route: 065

REACTIONS (4)
  - Erythema [Unknown]
  - Rash maculo-papular [Unknown]
  - Blister [Unknown]
  - Pruritus [Unknown]

NARRATIVE: CASE EVENT DATE: 201810
